FAERS Safety Report 5066650-7 (Version None)
Quarter: 2006Q3

REPORT INFORMATION
  Report Type: 
  Country: None (occurrence: None)
  Receive Date: 20060801
  Receipt Date: 20060724
  Transmission Date: 20061208
  Serious: Yes (Other)
  Sender: FDA-Public Use
  Company Number: 2006AC01384

PATIENT
  Age: 84 Year
  Sex: Female
  Weight: 44 kg

DRUGS (13)
  1. BUDESONIDE [Suspect]
     Indication: ASTHMA
     Route: 045
  2. ALENDRONATE SODIUM [Concomitant]
     Dosage: OVER PAST 6 YEARS
  3. CALCIUM GLUCONATE [Concomitant]
  4. VITAMIN D [Concomitant]
  5. MULTI-VITAMIN [Concomitant]
  6. SALMETEROL [Concomitant]
     Route: 055
  7. ALBUTEROL SPIROS [Concomitant]
     Dosage: 1 - 2 INHALATIONS AS NEEDED
     Route: 055
  8. HYDROCHLOROTHIAZIDE [Concomitant]
     Dosage: FOR PAST 5 MONTHS
  9. ESTROGEN CREAM [Concomitant]
     Dosage: 0.01%
     Route: 067
  10. ZINC SULFATE [Concomitant]
  11. COD LIVER OIL [Concomitant]
  12. BECLOMETHASONE DIPROPIONATE [Concomitant]
     Indication: ASTHMA
     Dosage: } TWICE A YEAR FOR PAST 10 YEARS, 600-800MG/DAY DURING EXACERBATIONS
     Route: 055
  13. PREDNISONE [Concomitant]
     Dosage: MOST RECENT AND ONLY USE IN 1994
     Dates: start: 19940101, end: 19940101

REACTIONS (1)
  - BONE DENSITY DECREASED [None]
